FAERS Safety Report 6386864-3 (Version None)
Quarter: 2009Q4

REPORT INFORMATION
  Report Type: 
  Country: None (occurrence: None)
  Receive Date: 20091001
  Receipt Date: 20091001
  Transmission Date: 20100525
  Serious: Yes (Other)
  Sender: FDA-Public Use
  Company Number: None

PATIENT
  Sex: Female
  Weight: 95 kg

DRUGS (1)
  1. LEVETIRACETAM [Suspect]
     Indication: EPILEPSY
     Dosage: 500MG TABS 2 QAM 2 QHS P.O.
     Route: 048
     Dates: start: 20090901

REACTIONS (5)
  - ANXIETY [None]
  - DEPRESSION [None]
  - INSOMNIA [None]
  - PARANOIA [None]
  - PRODUCT SUBSTITUTION ISSUE [None]
